FAERS Safety Report 16446962 (Version 1)
Quarter: 2019Q2

REPORT INFORMATION
  Report Type: Spontaneous
  Country: US (occurrence: US)
  Receive Date: 20190618
  Receipt Date: 20190618
  Transmission Date: 20190711
  Serious: Yes (Disabling)
  Sender: FDA-Public Use
  Company Number: US-PFIZER INC-2019260925

PATIENT

DRUGS (1)
  1. FELDENE [Suspect]
     Active Substance: PIROXICAM
     Dosage: 20 MG, UNK

REACTIONS (3)
  - Spinal stenosis [Unknown]
  - Intervertebral disc degeneration [Unknown]
  - Peripheral venous disease [Unknown]
